FAERS Safety Report 13330329 (Version 2)
Quarter: 2020Q4

REPORT INFORMATION
  Report Type: Report from Study
  Country: US (occurrence: US)
  Receive Date: 20170313
  Receipt Date: 20201201
  Transmission Date: 20210113
  Serious: No
  Sender: FDA-Public Use
  Company Number: US-009507513-1703USA002221

PATIENT
  Age: 45 Year
  Sex: Female

DRUGS (2)
  1. ASMANEX [Suspect]
     Active Substance: MOMETASONE FUROATE
     Indication: ASTHMA
     Dosage: 220 MICROGRAM, UNK
     Route: 055
  2. ASMANEX [Suspect]
     Active Substance: MOMETASONE FUROATE
     Dosage: 220 MICROGRAM, METERED DOSE: 60 MICROGRAM
     Route: 048

REACTIONS (6)
  - Product dose omission issue [Unknown]
  - Device malfunction [Unknown]
  - Wheezing [Not Recovered/Not Resolved]
  - Product container issue [Unknown]
  - Cough [Not Recovered/Not Resolved]
  - Poor quality device used [Unknown]

NARRATIVE: CASE EVENT DATE: 20201120
